FAERS Safety Report 5541984-8 (Version None)
Quarter: 2007Q4

REPORT INFORMATION
  Report Type: 
  Country: None (occurrence: None)
  Receive Date: 20071210
  Receipt Date: 20071127
  Transmission Date: 20080405
  Serious: Yes (Other)
  Sender: FDA-Public Use
  Company Number: US-MERCK-0711USA05055

PATIENT
  Age: 53 Year
  Sex: Male

DRUGS (2)
  1. DECADRON [Suspect]
     Route: 048
     Dates: start: 20070402, end: 20070520
  2. THALOMID [Concomitant]
     Indication: MULTIPLE MYELOMA
     Route: 048
     Dates: start: 20070420, end: 20070518

REACTIONS (3)
  - BLOOD GLUCOSE INCREASED [None]
  - DEHYDRATION [None]
  - DRUG INTOLERANCE [None]
